FAERS Safety Report 5369278-4 (Version None)
Quarter: 2007Q2

REPORT INFORMATION
  Report Type: 
  Country: None (occurrence: None)
  Receive Date: 20070625
  Receipt Date: 20070228
  Transmission Date: 20071010
  Serious: No
  Sender: FDA-Public Use
  Company Number: US-ASTRAZENECA-2007UW03871

PATIENT
  Age: 73 Year
  Sex: Male
  Weight: 90.7 kg

DRUGS (5)
  1. CRESTOR [Suspect]
     Indication: BLOOD CHOLESTEROL INCREASED
     Route: 048
     Dates: start: 20060901
  2. ATENOLOL [Concomitant]
  3. LISINOPRIL WITH HCTZ [Concomitant]
  4. LANOXIN [Concomitant]
  5. ASPIRIN [Concomitant]

REACTIONS (6)
  - ASTHENIA [None]
  - DIARRHOEA [None]
  - HYPOAESTHESIA [None]
  - MUSCULAR WEAKNESS [None]
  - PAIN IN EXTREMITY [None]
  - TREMOR [None]
